FAERS Safety Report 5212583-2 (Version None)
Quarter: 2007Q1

REPORT INFORMATION
  Report Type: 
  Country: None (occurrence: None)
  Receive Date: 20070118
  Receipt Date: 20060929
  Transmission Date: 20070707
  Serious: Yes (Hospitalization, Other)
  Sender: FDA-Public Use
  Company Number: US-PFIZER INC-2007001008

PATIENT
  Sex: Male
  Weight: 80.3 kg

DRUGS (2)
  1. BEXTRA [Suspect]
     Indication: BACK PAIN
     Route: 048
  2. BACTRIM DS [Suspect]
     Indication: URINARY TRACT INFECTION
     Route: 048
     Dates: start: 20031002, end: 20031011

REACTIONS (1)
  - STEVENS-JOHNSON SYNDROME [None]
